FAERS Safety Report 25691181 (Version 1)
Quarter: 2025Q3

REPORT INFORMATION
  Report Type: Spontaneous
  Country: EU (occurrence: EU)
  Receive Date: 20250818
  Receipt Date: 20250818
  Transmission Date: 20251021
  Serious: Yes (Hospitalization, Other)
  Sender: INSUD PHARMA
  Company Number: EU-INSUD PHARMA-2508DE06627

PATIENT

DRUGS (1)
  1. LEVONORGESTREL [Suspect]
     Active Substance: LEVONORGESTREL
     Indication: Post coital contraception
     Route: 065

REACTIONS (16)
  - Porphyria acute [Recovering/Resolving]
  - Posterior reversible encephalopathy syndrome [Recovering/Resolving]
  - Inappropriate antidiuretic hormone secretion [Recovering/Resolving]
  - Abdominal pain [Recovered/Resolved]
  - Altered state of consciousness [Recovering/Resolving]
  - Psychomotor hyperactivity [Recovering/Resolving]
  - General physical health deterioration [Recovering/Resolving]
  - Disorientation [Recovering/Resolving]
  - Somnolence [Recovering/Resolving]
  - Hyponatraemia [Recovering/Resolving]
  - Disturbance in attention [Recovering/Resolving]
  - Apraxia [Recovering/Resolving]
  - Agitation [Recovering/Resolving]
  - Asthenia [Recovering/Resolving]
  - Stupor [Recovering/Resolving]
  - Memory impairment [Not Recovered/Not Resolved]
